FAERS Safety Report 25374729 (Version 2)
Quarter: 2025Q2

REPORT INFORMATION
  Report Type: Report from Study
  Country: US (occurrence: US)
  Receive Date: 20250529
  Receipt Date: 20250605
  Transmission Date: 20250717
  Serious: Yes (Other)
  Sender: ABBVIE
  Company Number: US-ABBVIE-6298886

PATIENT
  Age: 81 Year
  Sex: Male
  Weight: 77.11 kg

DRUGS (1)
  1. RINVOQ [Suspect]
     Active Substance: UPADACITINIB
     Indication: Product used for unknown indication
     Route: 048
     Dates: start: 20230313

REACTIONS (2)
  - Basal cell carcinoma [Recovering/Resolving]
  - Tendon rupture [Recovered/Resolved]

NARRATIVE: CASE EVENT DATE: 20241204
